FAERS Safety Report 25096513 (Version 4)
Quarter: 2025Q2

REPORT INFORMATION
  Report Type: Spontaneous
  Country: CZ (occurrence: CZ)
  Receive Date: 20250319
  Receipt Date: 20250604
  Transmission Date: 20250717
  Serious: Yes (Other)
  Sender: MYLAN
  Company Number: CZ-002147023-NVSC2025CZ035081

PATIENT
  Age: 37 Year
  Sex: Female

DRUGS (7)
  1. EVEROLIMUS [Suspect]
     Active Substance: EVEROLIMUS
     Indication: Metastatic neoplasm
  2. EXEMESTANE [Suspect]
     Active Substance: EXEMESTANE
     Indication: Metastatic neoplasm
  3. LETROZOLE [Suspect]
     Active Substance: LETROZOLE
     Indication: Breast cancer metastatic
  4. RIBOCICLIB [Suspect]
     Active Substance: RIBOCICLIB
     Indication: Breast cancer metastatic
  5. RIBOCICLIB [Suspect]
     Active Substance: RIBOCICLIB
  6. RIBOCICLIB [Suspect]
     Active Substance: RIBOCICLIB
     Dosage: 200 MILLIGRAM, QD, (FOR 30 MONTHS)
  7. ABEMACICLIB [Suspect]
     Active Substance: ABEMACICLIB
     Indication: Breast cancer metastatic

REACTIONS (4)
  - Breast cancer metastatic [Unknown]
  - Metastases to liver [Not Recovered/Not Resolved]
  - Malignant neoplasm progression [Unknown]
  - Neutropenia [Not Recovered/Not Resolved]
